FAERS Safety Report 8439817-5 (Version None)
Quarter: 2012Q2

REPORT INFORMATION
  Report Type: 
  Country: None (occurrence: None)
  Receive Date: 20120615
  Receipt Date: 20120611
  Transmission Date: 20120825
  Serious: Yes (Hospitalization)
  Sender: FDA-Public Use
  Company Number: DE-PFIZER INC-2012130186

PATIENT
  Age: 43 Year
  Sex: Female
  Weight: 90 kg

DRUGS (8)
  1. VENLAFAXINE HCL [Suspect]
     Dosage: 220 MG, PER DAY
     Route: 048
     Dates: start: 20120412
  2. LORAZEPAM [Concomitant]
     Indication: SEDATIVE THERAPY
     Dosage: AS NEEDED
  3. VENLAFAXINE HCL [Suspect]
     Indication: DEPRESSION
     Dosage: UNK
     Dates: start: 19980101
  4. DOXEPIN HCL [Concomitant]
     Indication: PSYCHOTIC DISORDER
     Dosage: 150 MG, UNK
  5. VENLAFAXINE HCL [Suspect]
     Indication: DEPRESSION
     Dosage: 225 MG, PER DAY
     Dates: start: 20040101
  6. LITHIUM CARBONATE [Concomitant]
     Indication: DEPRESSION
     Dosage: 450 MG, 2.5 TABLETS
  7. TRIAMTEREN [Concomitant]
     Dosage: 75 MG, UNK
     Dates: start: 20111201
  8. RISPERDAL [Concomitant]
     Indication: PSYCHOTIC DISORDER
     Dosage: 1.5 MG, UNK

REACTIONS (7)
  - EMOTIONAL POVERTY [None]
  - DEPRESSION [None]
  - SLEEP DISORDER [None]
  - APATHY [None]
  - SOCIAL AVOIDANT BEHAVIOUR [None]
  - SUICIDAL IDEATION [None]
  - ANXIETY [None]
